FAERS Safety Report 15530495 (Version 2)
Quarter: 2018Q4

REPORT INFORMATION
  Report Type: Report from Study
  Country: BR (occurrence: BR)
  Receive Date: 20181018
  Receipt Date: 20181116
  Transmission Date: 20190205
  Serious: Yes (Death, Hospitalization, Other)
  Sender: FDA-Public Use
  Company Number: PHHY2018BR130460

PATIENT
  Sex: Female

DRUGS (4)
  1. TRAMADOL. [Concomitant]
     Active Substance: TRAMADOL
     Indication: PAIN
     Route: 065
  2. ACLASTA [Suspect]
     Active Substance: ZOLEDRONIC ACID
     Dosage: 1 DF, Q12MO
     Route: 042
     Dates: start: 201709, end: 201709
  3. ACLASTA [Suspect]
     Active Substance: ZOLEDRONIC ACID
     Indication: OSTEOPOROSIS
     Dosage: 1 DF, Q12MO
     Route: 042
     Dates: start: 201609
  4. TANDRILAX [Concomitant]
     Active Substance: ACETAMINOPHEN\CAFFEINE\CARISOPRODOL\DICLOFENAC SODIUM
     Indication: PAIN
     Route: 065

REACTIONS (11)
  - Defaecation disorder [Unknown]
  - Asthenia [Unknown]
  - Weight decreased [Unknown]
  - Condition aggravated [Fatal]
  - Functional gastrointestinal disorder [Unknown]
  - Gait disturbance [Unknown]
  - Osteoporosis [Fatal]
  - Osteomalacia [Fatal]
  - Pain [Unknown]
  - Respiratory failure [Fatal]
  - Mobility decreased [Unknown]
